FAERS Safety Report 24706666 (Version 1)
Quarter: 2024Q4

REPORT INFORMATION
  Report Type: Spontaneous
  Country: FI (occurrence: FI)
  Receive Date: 20241206
  Receipt Date: 20241206
  Transmission Date: 20250115
  Serious: Yes (Other)
  Sender: TEVA
  Company Number: FI-TEVA-VS-3260924

PATIENT
  Age: 86 Year
  Sex: Male

DRUGS (2)
  1. MIRTAZAPINE [Suspect]
     Active Substance: MIRTAZAPINE
     Indication: Insomnia
     Dosage: 1/4 OR HALF A TABLET AT NIGHT BEFORE BED, RATIOPHARM
     Route: 048
  2. MIRTAZAPINE [Suspect]
     Active Substance: MIRTAZAPINE
     Indication: Insomnia
     Dosage: HALF A TABLET AT NIGHT BEFORE BED RATIOPHARM
     Route: 048
     Dates: start: 2024

REACTIONS (4)
  - Syncope [Recovered/Resolved]
  - Poor quality sleep [Recovered/Resolved]
  - Arrhythmia [Recovered/Resolved]
  - Wrong technique in product usage process [Unknown]

NARRATIVE: CASE EVENT DATE: 20240101
